FAERS Safety Report 17857298 (Version 2)
Quarter: 2020Q2

REPORT INFORMATION
  Report Type: Spontaneous
  Country: CH (occurrence: CH)
  Receive Date: 20200603
  Receipt Date: 20200617
  Transmission Date: 20200714
  Serious: Yes (Other)
  Sender: FDA-Public Use
  Company Number: CH-NOVOPROD-712066

PATIENT
  Age: 67 Year
  Sex: Female
  Weight: 98 kg

DRUGS (2)
  1. OZEMPIC [Suspect]
     Active Substance: SEMAGLUTIDE
     Indication: OBESITY
     Dosage: 0.5 MG, QW
     Route: 065
     Dates: start: 20190702
  2. OZEMPIC [Suspect]
     Active Substance: SEMAGLUTIDE
     Dosage: 1 MG, QW
     Route: 065
     Dates: end: 20191008

REACTIONS (7)
  - Oral fungal infection [Recovered/Resolved]
  - Vomiting [Recovered/Resolved]
  - Vulvovaginal mycotic infection [Recovered/Resolved]
  - Taste disorder [Recovered/Resolved]
  - Off label use [Unknown]
  - Nausea [Recovered/Resolved]
  - Diarrhoea [Recovered/Resolved]

NARRATIVE: CASE EVENT DATE: 201907
